FAERS Safety Report 19149104 (Version 2)
Quarter: 2021Q2

REPORT INFORMATION
  Report Type: Spontaneous
  Country: US (occurrence: US)
  Receive Date: 20210416
  Receipt Date: 20210524
  Transmission Date: 20210717
  Serious: No
  Sender: FDA-Public Use
  Company Number: US-SA-2021SA118278

PATIENT
  Sex: Female

DRUGS (1)
  1. ALLEGRA D?12 HOUR [Suspect]
     Active Substance: FEXOFENADINE HYDROCHLORIDE\PSEUDOEPHEDRINE HYDROCHLORIDE
     Dosage: DRUG STRUCTURE DOSAGE : 60 MG+120 MG EXTENDED RELEASE TABLET DRUG INTERVAL DOSAGE : ONCE DAILY

REACTIONS (3)
  - Product use complaint [Unknown]
  - Hypersensitivity [Unknown]
  - Nasal congestion [Unknown]
